FAERS Safety Report 18272580 (Version 1)
Quarter: 2020Q3

REPORT INFORMATION
  Report Type: Spontaneous
  Country: US (occurrence: US)
  Receive Date: 20200915
  Receipt Date: 20200915
  Transmission Date: 20201103
  Serious: Yes (Hospitalization)
  Sender: FDA-Public Use
  Company Number: None

PATIENT
  Age: 60 Year
  Sex: Female

DRUGS (1)
  1. OPSUMIT [Suspect]
     Active Substance: MACITENTAN
     Indication: PULMONARY ARTERIAL HYPERTENSION
     Route: 048
     Dates: start: 20171019, end: 20200827

REACTIONS (13)
  - Cardiac failure acute [None]
  - Bradycardia [None]
  - Acute kidney injury [None]
  - Abdominal distension [None]
  - Pulseless electrical activity [None]
  - Urinary tract infection [None]
  - Hypotension [None]
  - Supraventricular tachycardia [None]
  - Iron deficiency anaemia [None]
  - Right ventricular failure [None]
  - Oedema peripheral [None]
  - Klebsiella infection [None]
  - Cardiogenic shock [None]

NARRATIVE: CASE EVENT DATE: 20200812
